FAERS Safety Report 16766079 (Version 2)
Quarter: 2020Q2

REPORT INFORMATION
  Report Type: Spontaneous
  Country: US (occurrence: US)
  Receive Date: 20190903
  Receipt Date: 20200527
  Transmission Date: 20200713
  Serious: Yes (Other)
  Sender: FDA-Public Use
  Company Number: US-GILEAD-2019-0425748

PATIENT
  Sex: Male

DRUGS (1)
  1. TRUVADA [Suspect]
     Active Substance: EMTRICITABINE\TENOFOVIR DISOPROXIL FUMARATE
     Indication: HIV INFECTION
     Dosage: UNK
     Route: 048
     Dates: start: 20130507, end: 20171106

REACTIONS (10)
  - Lower limb fracture [Unknown]
  - Pain [Unknown]
  - Spinal fracture [Unknown]
  - Anhedonia [Unknown]
  - Anxiety [Unknown]
  - Economic problem [Unknown]
  - Wrist fracture [Unknown]
  - Multiple fractures [Unknown]
  - Bone density decreased [Unknown]
  - Emotional distress [Unknown]

NARRATIVE: CASE EVENT DATE: 2016
